FAERS Safety Report 4670268-5 (Version None)
Quarter: 2005Q2

REPORT INFORMATION
  Report Type: 
  Country: None (occurrence: None)
  Receive Date: 20050520
  Receipt Date: 20050507
  Transmission Date: 20051028
  Serious: Yes (Hospitalization)
  Sender: FDA-Public Use
  Company Number: 2005071648

PATIENT
  Age: 84 Year
  Sex: Male
  Weight: 88.4514 kg

DRUGS (7)
  1. ROGAINE [Suspect]
     Indication: ALOPECIA
     Dosage: 1 APPLICATION BID, TOPICAL
     Route: 061
     Dates: start: 20040101, end: 20050503
  2. MULTIVITAMINS (ASCORBIC ACID, ERGOCALCIFEROL, FOLIC ACID, NICOTINAMIDE [Concomitant]
  3. FINASTERIDE [Concomitant]
  4. ALENDRONATE SODIUM [Concomitant]
  5. TAMSULOSIN HYDROCHLORIDE (TAMSULOSIN HYDROCHLORIDE) [Concomitant]
  6. SIMVASTATIN [Concomitant]
  7. ASPIRIN [Concomitant]

REACTIONS (1)
  - PERICARDITIS [None]
